FAERS Safety Report 25982020 (Version 1)
Quarter: 2025Q4

REPORT INFORMATION
  Report Type: Spontaneous
  Country: CN (occurrence: CN)
  Receive Date: 20251031
  Receipt Date: 20251031
  Transmission Date: 20260118
  Serious: Yes (Hospitalization)
  Sender: JIANGSU HENGRUI PHARMACEUTICALS CO., LTD.
  Company Number: CN-JIANGSU HENGRUI PHARMACEUTICALS CO., LTD.-H2025237664

PATIENT
  Age: 47 Year
  Weight: 44 kg

DRUGS (3)
  1. OXALIPLATIN [Suspect]
     Active Substance: OXALIPLATIN
     Indication: Metastases to ovary
     Dosage: 190 MG, D1
  2. OXALIPLATIN [Suspect]
     Active Substance: OXALIPLATIN
     Dosage: 190 MG, D1
  3. SINTILIMAB [Concomitant]
     Active Substance: SINTILIMAB
     Indication: Metastases to ovary
     Dosage: 200 MG, Q15D

REACTIONS (4)
  - Immune-mediated hepatic disorder [Recovering/Resolving]
  - Renal impairment [Recovering/Resolving]
  - Rash [Recovering/Resolving]
  - Pruritus [Recovering/Resolving]
